FAERS Safety Report 25914558 (Version 1)
Quarter: 2025Q4

REPORT INFORMATION
  Report Type: Spontaneous
  Country: GB (occurrence: GB)
  Receive Date: 20251013
  Receipt Date: 20251013
  Transmission Date: 20260117
  Serious: Yes (Other)
  Sender: ELI LILLY AND COMPANY
  Company Number: None

PATIENT
  Age: 40 Year
  Sex: Female
  Weight: 83 kg

DRUGS (1)
  1. MOUNJARO [Suspect]
     Active Substance: TIRZEPATIDE
     Indication: Weight control
     Dosage: 7.5 MG, UNKNOWN
     Route: 065
     Dates: start: 20250710, end: 20250911

REACTIONS (6)
  - Head discomfort [Recovered/Resolved with Sequelae]
  - Tympanic membrane perforation [Unknown]
  - Vision blurred [Unknown]
  - Ear discomfort [Unknown]
  - Rhinitis [Unknown]
  - Hypertension [Unknown]

NARRATIVE: CASE EVENT DATE: 20250724
